FAERS Safety Report 10148837 (Version 2)
Quarter: 2014Q2

REPORT INFORMATION
  Report Type: Spontaneous
  Country: RO (occurrence: RO)
  Receive Date: 20140502
  Receipt Date: 20140513
  Transmission Date: 20141212
  Serious: Yes (Hospitalization, Other)
  Sender: FDA-Public Use
  Company Number: RO-009507513-1404ROM015700

PATIENT
  Age: 63 Year
  Sex: Male
  Weight: 76 kg

DRUGS (9)
  1. PEGINTRON [Suspect]
     Indication: CHRONIC HEPATITIS C
     Dosage: STRENGTH: 120 MCG, WEEKLY
     Route: 058
     Dates: start: 20131115
  2. REBETOL [Suspect]
     Indication: CHRONIC HEPATITIS C
     Dosage: 600 MG, QD
     Route: 048
     Dates: start: 20131115
  3. REBETOL [Suspect]
     Dosage: 200 MG,/DAY
     Route: 048
  4. DIGOXIN [Concomitant]
     Indication: CARDIAC FAILURE
     Dosage: 1 DF, QD
     Route: 048
     Dates: start: 2000
  5. CARVEDILOL [Concomitant]
     Indication: CARDIAC FAILURE
     Dosage: 0.5 MCG, DAILY
     Route: 048
     Dates: start: 2000
  6. CARVEDILOL [Concomitant]
     Indication: CORONARY ARTERY DISEASE
  7. CARVEDILOL [Concomitant]
     Indication: HYPERTENSION
  8. TROMBOSTOP [Concomitant]
     Indication: ATRIAL FIBRILLATION
     Dosage: 1 DF, QD
     Route: 048
     Dates: start: 2000
  9. SIOFOR [Concomitant]
     Indication: DIABETES MELLITUS
     Dosage: 2 DF, DAILY
     Route: 048
     Dates: start: 2000

REACTIONS (3)
  - Cholecystectomy [Recovered/Resolved]
  - Cholecystitis acute [Recovered/Resolved]
  - Anaemia [Not Recovered/Not Resolved]
